FAERS Safety Report 13085672 (Version 2)
Quarter: 2017Q1

REPORT INFORMATION
  Report Type: Spontaneous
  Country: US (occurrence: US)
  Receive Date: 20170104
  Receipt Date: 20170126
  Transmission Date: 20170428
  Serious: No
  Sender: FDA-Public Use
  Company Number: US-PFIZER INC-2016603955

PATIENT
  Age: 45 Year
  Sex: Male
  Weight: 93 kg

DRUGS (8)
  1. EXCEDRIN [Concomitant]
     Active Substance: ACETAMINOPHEN\ASPIRIN\CAFFEINE
     Indication: MIGRAINE
     Dosage: UNK UNK, AS NEEDED
     Route: 048
  2. GENOTROPIN [Suspect]
     Active Substance: SOMATROPIN
     Dosage: 0.6 MG, DAILY
  3. CENTRUM [Concomitant]
     Active Substance: VITAMINS
     Dosage: UNK
     Route: 048
  4. PRINIVIL [Concomitant]
     Active Substance: LISINOPRIL
     Dosage: 10 MG, DAILY, (TAKE 10 MG BY MOUTH EVERY DAY)
     Route: 048
  5. GENOTROPIN [Suspect]
     Active Substance: SOMATROPIN
     Dosage: 0.2 MG, DAILY
  6. IMITREX [Concomitant]
     Active Substance: SUMATRIPTAN SUCCINATE
     Dosage: 1 DF, AS NEEDED
     Route: 048
  7. ANDROGEL [Concomitant]
     Active Substance: TESTOSTERONE
     Indication: DRY SKIN
     Dosage: 7.5 G, DAILY, (APPLY 7.5 G EVERY DAY)
     Route: 061
     Dates: start: 201001
  8. GENOTROPIN [Suspect]
     Active Substance: SOMATROPIN
     Dosage: 0.3 MG, DAILY, (0.3 MG BY SUBCUTANEOUS ROUTE EVERY DAY)
     Route: 058

REACTIONS (1)
  - Injection site pain [Unknown]
